FAERS Safety Report 7398042-X (Version None)
Quarter: 2011Q2

REPORT INFORMATION
  Report Type: 
  Country: None (occurrence: None)
  Receive Date: 20110406
  Receipt Date: 20110325
  Transmission Date: 20111010
  Serious: Yes (Other)
  Sender: FDA-Public Use
  Company Number: FR-ASTRAZENECA-2011SE08415

PATIENT
  Age: 22092 Day
  Sex: Male
  Weight: 76 kg

DRUGS (5)
  1. NORVIR [Concomitant]
     Indication: PROPHYLAXIS AGAINST HIV INFECTION
     Route: 048
  2. UNSPECIFIED PROPHYLAXIS AGAINST AIDS [Suspect]
     Indication: PROPHYLAXIS AGAINST HIV INFECTION
     Route: 065
  3. CRESTOR [Suspect]
     Indication: DYSLIPIDAEMIA
     Route: 048
     Dates: start: 20090201, end: 20100201
  4. APTIVUS [Concomitant]
     Indication: PROPHYLAXIS AGAINST HIV INFECTION
     Route: 048
  5. ISENTRESS [Concomitant]
     Indication: PROPHYLAXIS AGAINST HIV INFECTION
     Route: 048

REACTIONS (1)
  - CHRONIC HEPATITIS [None]
